FAERS Safety Report 9694984 (Version 1)
Quarter: 2013Q4

REPORT INFORMATION
  Report Type: Spontaneous
  Country: GR (occurrence: GR)
  Receive Date: 20131119
  Receipt Date: 20131119
  Transmission Date: 20140711
  Serious: Yes (Other)
  Sender: FDA-Public Use
  Company Number: GR-BRISTOL-MYERS SQUIBB COMPANY-19799600

PATIENT
  Sex: Female

DRUGS (1)
  1. BARACLUDE [Suspect]
     Dosage: LONG-TREATMENT.?ONGOING

REACTIONS (1)
  - Infertility [Unknown]
